FAERS Safety Report 26082359 (Version 1)
Quarter: 2025Q4

REPORT INFORMATION
  Report Type: Spontaneous
  Country: US (occurrence: None)
  Receive Date: 20251122
  Receipt Date: 20251122
  Transmission Date: 20260118
  Serious: Yes (Hospitalization, Disabling, Other)
  Sender: FDA-CTU
  Company Number: None

PATIENT
  Age: 82 Year
  Sex: Female
  Weight: 81 kg

DRUGS (1)
  1. JARDIANCE [Suspect]
     Active Substance: EMPAGLIFLOZIN
     Indication: Type 2 diabetes mellitus
     Route: 048

REACTIONS (8)
  - Dizziness [None]
  - Muscular weakness [None]
  - Diarrhoea [None]
  - Fall [None]
  - Pyrexia [None]
  - Rash [None]
  - Urinary tract infection [None]
  - Dyspnoea [None]

NARRATIVE: CASE EVENT DATE: 20251119
